FAERS Safety Report 6272675-6 (Version None)
Quarter: 2009Q3

REPORT INFORMATION
  Report Type: 
  Country: None (occurrence: None)
  Receive Date: 20090716
  Receipt Date: 20090716
  Transmission Date: 20100115
  Serious: Yes (Other)
  Sender: FDA-Public Use
  Company Number: None

PATIENT
  Sex: Female
  Weight: 63.4 kg

DRUGS (1)
  1. DEPO-PROVERA [Suspect]
     Indication: CONTRACEPTION
     Dosage: DMPA 150 MG/ 1 ML EVERY 10-13 WEEKS IM INJECTION-030
     Route: 030
     Dates: start: 20090406

REACTIONS (3)
  - ABDOMINAL DISTENSION [None]
  - FEELING ABNORMAL [None]
  - NAUSEA [None]
